FAERS Safety Report 5827244-6 (Version None)
Quarter: 2008Q3

REPORT INFORMATION
  Report Type: 
  Country: None (occurrence: None)
  Receive Date: 20080725
  Receipt Date: 20080717
  Transmission Date: 20090109
  Serious: Yes (Death, Hospitalization)
  Sender: FDA-Public Use
  Company Number: GXKR2008GR06711

PATIENT
  Age: 24 Year
  Sex: Male

DRUGS (3)
  1. PREDNISOLONE [Suspect]
     Indication: IDIOPATHIC THROMBOCYTOPENIC PURPURA
     Dosage: 1 MG/KG, QD; INTRAVENOUS
     Route: 042
  2. IMMUNOGLOBULINS (IMMUNOGLOBULINS) [Concomitant]
  3. DANAZOL [Concomitant]

REACTIONS (6)
  - BRONCHOPULMONARY ASPERGILLOSIS [None]
  - CEREBRAL ASPERGILLOSIS [None]
  - COUGH [None]
  - HEADACHE [None]
  - PRODUCTIVE COUGH [None]
  - PYREXIA [None]
